FAERS Safety Report 5038000-3 (Version None)
Quarter: 2006Q2

REPORT INFORMATION
  Report Type: 
  Country: None (occurrence: None)
  Receive Date: 20060616
  Receipt Date: 20060410
  Transmission Date: 20061013
  Serious: Yes (Hospitalization)
  Sender: FDA-Public Use
  Company Number: NUBN20060004

PATIENT
  Age: 5 Year
  Sex: Female

DRUGS (4)
  1. NUBAIN [Suspect]
     Indication: PAIN IN EXTREMITY
     Dosage: 3 MG ONCE IV
     Route: 042
     Dates: start: 20051002, end: 20051002
  2. NUBAIN [Suspect]
     Indication: PAIN IN EXTREMITY
     Dosage: 6 MG ONCE PR
     Dates: start: 20051002, end: 20051002
  3. VENTOLIN [Concomitant]
  4. PULMICORT [Concomitant]

REACTIONS (1)
  - RASH PRURITIC [None]
